FAERS Safety Report 10007834 (Version 2)
Quarter: 2014Q1

REPORT INFORMATION
  Report Type: Spontaneous
  Country: US (occurrence: US)
  Receive Date: 20140313
  Receipt Date: 20140313
  Transmission Date: 20141002
  Serious: No
  Sender: FDA-Public Use
  Company Number: US-GILEAD-2013-0069602

PATIENT
  Sex: Female

DRUGS (3)
  1. LETAIRIS [Suspect]
     Indication: PULMONARY HYPERTENSION
     Dosage: 5 MG, QD
     Dates: start: 20110823
  2. LETAIRIS [Suspect]
     Indication: HIV INFECTION
  3. TYVASO [Concomitant]

REACTIONS (2)
  - Influenza [Unknown]
  - Cough [Unknown]
